FAERS Safety Report 17838464 (Version 2)
Quarter: 2021Q4

REPORT INFORMATION
  Report Type: Spontaneous
  Country: CZ (occurrence: CZ)
  Receive Date: 20200528
  Receipt Date: 20211106
  Transmission Date: 20220303
  Serious: Yes (Other)
  Sender: FDA-Public Use
  Company Number: CZ-NOVARTISPH-NVSC2020CZ070955

PATIENT
  Age: 72 Year
  Sex: Female

DRUGS (5)
  1. METHOTREXATE [Suspect]
     Active Substance: METHOTREXATE
     Indication: Rheumatoid arthritis
     Dosage: 15 MG, QW, HIGHER DOSES (MAXIMUM DOSE AT THIS TIME WAS 15 MG PER WEEK)
     Route: 065
  2. METHOTREXATE [Suspect]
     Active Substance: METHOTREXATE
     Dosage: 10 MG, QW
     Route: 048
  3. METHOTREXATE [Suspect]
     Active Substance: METHOTREXATE
     Dosage: 10 MG, QW, ORAL METHOTREXATE WAS STARTED AT 10 MG WEEKLY, SUBCUTANEOUS METHOTREXATE
     Route: 058
     Dates: start: 2010, end: 201107
  4. TOFACITINIB [Suspect]
     Active Substance: TOFACITINIB
     Indication: Rheumatoid arthritis
     Dosage: 2 X 10 MG PER DAY, HIGHER DOSE, 2 X 5 MG DAILY WAS INITIATED
     Route: 065
     Dates: start: 2010, end: 201107
  5. TOFACITINIB [Suspect]
     Active Substance: TOFACITINIB
     Dosage: 5 MG, BID
     Route: 065
     Dates: start: 201712

REACTIONS (3)
  - Transient ischaemic attack [Recovered/Resolved]
  - Herpes zoster [Unknown]
  - Drug intolerance [Unknown]

NARRATIVE: CASE EVENT DATE: 20110701
